FAERS Safety Report 9375237 (Version 1)
Quarter: 2013Q2

REPORT INFORMATION
  Report Type: Spontaneous
  Country: IT (occurrence: IT)
  Receive Date: 20130628
  Receipt Date: 20130628
  Transmission Date: 20140414
  Serious: Yes (Hospitalization, Other)
  Sender: FDA-Public Use
  Company Number: IT-ASTRAZENECA-2013SE48042

PATIENT
  Age: 70 Year
  Sex: Male

DRUGS (10)
  1. BRILIQUE [Suspect]
     Indication: ACUTE MYOCARDIAL INFARCTION
     Route: 048
  2. ROSUVASTATIN [Suspect]
     Indication: HYPERCHOLESTEROLAEMIA
     Route: 048
  3. RENEXA (RANOLAZINE) [Suspect]
     Route: 065
  4. REPAGLINIDE [Concomitant]
  5. VENTOLIN (SALBUTAMOL) [Concomitant]
  6. OMEPRAZOLE [Concomitant]
  7. PROPRANOLOL [Concomitant]
  8. CARDIRENE (LYSINE ACETYLSALICYLATE) [Concomitant]
  9. AMARYL (GLIMEPIRIDE) [Concomitant]
  10. FORADIL (FORMOTEROL) [Concomitant]

REACTIONS (5)
  - Glycosuria [Not Recovered/Not Resolved]
  - Proteinuria [Not Recovered/Not Resolved]
  - Cardiac disorder [Unknown]
  - Glycosylated haemoglobin increased [None]
  - Leukocyturia [None]
